FAERS Safety Report 7689030-4 (Version None)
Quarter: 2011Q3

REPORT INFORMATION
  Report Type: 
  Country: None (occurrence: None)
  Receive Date: 20110817
  Receipt Date: 20110812
  Transmission Date: 20111222
  Serious: Yes (Hospitalization, Other)
  Sender: FDA-Public Use
  Company Number: US-AMGEN-QUU430963

PATIENT
  Sex: Female

DRUGS (3)
  1. NPLATE [Suspect]
     Indication: IDIOPATHIC THROMBOCYTOPENIC PURPURA
     Dosage: 10 A?G/KG, UNK
     Dates: start: 20090127, end: 20100901
  2. IMMUNOGLOBULINS [Concomitant]
     Dosage: UNK UNK, UNK
     Route: 042
  3. CORTICOSTEROID NOS [Concomitant]

REACTIONS (2)
  - DRUG INEFFECTIVE [None]
  - EPISTAXIS [None]
